FAERS Safety Report 26162377 (Version 1)
Quarter: 2025Q4

REPORT INFORMATION
  Report Type: Spontaneous
  Country: EU (occurrence: EU)
  Receive Date: 20251216
  Receipt Date: 20251216
  Transmission Date: 20260117
  Serious: Yes (Hospitalization)
  Sender: TEVA
  Company Number: None

PATIENT
  Sex: Male
  Weight: 3.35 kg

DRUGS (1)
  1. PAROXETINE [Suspect]
     Active Substance: PAROXETINE
     Indication: Burnout syndrome
     Dosage: PAROXETINE BASE
     Route: 064
     Dates: start: 202406, end: 20250320

REACTIONS (3)
  - Respiratory distress [Recovered/Resolved]
  - Hypertonia [Recovered/Resolved]
  - Maternal exposure during pregnancy [Recovered/Resolved]

NARRATIVE: CASE EVENT DATE: 20240601
